FAERS Safety Report 7138924-7 (Version None)
Quarter: 2010Q4

REPORT INFORMATION
  Report Type: 
  Country: None (occurrence: None)
  Receive Date: 20101206
  Receipt Date: 20101123
  Transmission Date: 20110411
  Serious: Yes (Hospitalization)
  Sender: FDA-Public Use
  Company Number: A0776650A

PATIENT
  Age: 63 Year
  Sex: Female
  Weight: 84.1 kg

DRUGS (7)
  1. AVANDIA [Suspect]
     Dosage: 2MG PER DAY
     Route: 048
     Dates: start: 20051001, end: 20070524
  2. COZAAR [Concomitant]
  3. INSULIN [Concomitant]
  4. TEMAZEPAM [Concomitant]
  5. WELLBUTRIN [Concomitant]
  6. LYRICA [Concomitant]
  7. PRILOSEC [Concomitant]

REACTIONS (4)
  - ANGINA PECTORIS [None]
  - CARDIAC FAILURE CONGESTIVE [None]
  - CORONARY ARTERY DISEASE [None]
  - ISCHAEMIA [None]
